FAERS Safety Report 20957457 (Version 2)
Quarter: 2022Q2

REPORT INFORMATION
  Report Type: Report from Study
  Country: CA (occurrence: CA)
  Receive Date: 20220614
  Receipt Date: 20220616
  Transmission Date: 20220721
  Serious: Yes (Other)
  Sender: FDA-Public Use
  Company Number: CA-HLS-202201072

PATIENT
  Age: 50 Year
  Sex: Female

DRUGS (1)
  1. CLOZARIL [Suspect]
     Active Substance: CLOZAPINE
     Indication: Product used for unknown indication
     Dosage: AT BEDTIME FOR MORE THAN 4-5 YEARS, THEN DOSE WAS REDUCED AT 200MG AT BEDTIME.
     Route: 048
     Dates: start: 20171221

REACTIONS (5)
  - Neutropenia [Unknown]
  - Neutrophil count increased [Unknown]
  - Chemotherapy [Unknown]
  - Non-Hodgkin^s lymphoma [Unknown]
  - Leukopenia [Unknown]

NARRATIVE: CASE EVENT DATE: 20220502
